FAERS Safety Report 5123329-0 (Version None)
Quarter: 2006Q4

REPORT INFORMATION
  Report Type: 
  Country: None (occurrence: None)
  Receive Date: 20061005
  Receipt Date: 20060921
  Transmission Date: 20070319
  Serious: Yes (Death)
  Sender: FDA-Public Use
  Company Number: FABR-11652

PATIENT
  Age: 42 Year
  Sex: Male

DRUGS (6)
  1. FABRAZYME [Suspect]
     Indication: FABRY'S DISEASE
     Dosage: 70 MG Q2WKS IV
     Route: 042
     Dates: start: 20050427, end: 20060519
  2. CYCLOSPORINE [Concomitant]
  3. CELLCEPT [Concomitant]
  4. PREDNISOLONE [Concomitant]
  5. CLONAZEPAM [Concomitant]
  6. BISOPROLOL FUMARATE [Concomitant]

REACTIONS (4)
  - GASTRIC HAEMORRHAGE [None]
  - GASTROINTESTINAL ANGIODYSPLASIA [None]
  - GENERAL PHYSICAL HEALTH DETERIORATION [None]
  - POST PROCEDURAL COMPLICATION [None]
